FAERS Safety Report 11420661 (Version 1)
Quarter: 2015Q3

REPORT INFORMATION
  Report Type: Spontaneous
  Country: US (occurrence: US)
  Receive Date: 20150826
  Receipt Date: 20150826
  Transmission Date: 20151125
  Serious: No
  Sender: FDA-Public Use
  Company Number: US-PFIZER INC-2015271837

PATIENT
  Sex: Female

DRUGS (2)
  1. ADVIL PM [Suspect]
     Active Substance: DIPHENHYDRAMINE CITRATE\IBUPROFEN
     Dosage: UNK, 1X/DAY (EVERY DAY AT NIGHT)
  2. ZITHROMAX [Suspect]
     Active Substance: AZITHROMYCIN DIHYDRATE
     Dosage: 1 DF, DAILY(AT NIGHT)

REACTIONS (2)
  - Urinary tract infection [Unknown]
  - Intentional product misuse [Unknown]
